FAERS Safety Report 24462061 (Version 1)
Quarter: 2024Q4

REPORT INFORMATION
  Report Type: Report from Study
  Country: US (occurrence: US)
  Receive Date: 20241018
  Receipt Date: 20241018
  Transmission Date: 20250114
  Serious: No
  Sender: ROCHE
  Company Number: US-ROCHE-3567662

PATIENT
  Age: 42 Year
  Sex: Female

DRUGS (6)
  1. RITUXAN [Suspect]
     Active Substance: RITUXIMAB
     Indication: Encephalitis
     Dosage: STRENGTH: 500MG/50ML,  1000MG IV ON DAY 1 AND 15
     Route: 041
  2. RITUXAN [Suspect]
     Active Substance: RITUXIMAB
     Indication: Encephalomyelitis
  3. RITUXAN [Suspect]
     Active Substance: RITUXIMAB
     Indication: Systemic lupus erythematosus
  4. METRONIDAZOLE [Concomitant]
     Active Substance: METRONIDAZOLE
  5. OMEPRAZOLE [Concomitant]
     Active Substance: OMEPRAZOLE
  6. THIAMINE [Concomitant]
     Active Substance: THIAMINE

REACTIONS (2)
  - Off label use [Unknown]
  - No adverse event [Unknown]
